FAERS Safety Report 6372583-6 (Version None)
Quarter: 2009Q3

REPORT INFORMATION
  Report Type: 
  Country: None (occurrence: None)
  Receive Date: 20090924
  Receipt Date: 20080923
  Transmission Date: 20100115
  Serious: No
  Sender: FDA-Public Use
  Company Number: US-ASTRAZENECA-2008UW19926

PATIENT
  Sex: Female

DRUGS (2)
  1. SEROQUEL [Suspect]
     Indication: SCHIZOPHRENIA
     Route: 048
  2. ABILIFY [Concomitant]

REACTIONS (6)
  - AGGRESSION [None]
  - DROOLING [None]
  - DRUG EXPOSURE DURING PREGNANCY [None]
  - FLAT AFFECT [None]
  - IMPULSIVE BEHAVIOUR [None]
  - IRRITABILITY [None]
